FAERS Safety Report 5229205-7 (Version None)
Quarter: 2007Q1

REPORT INFORMATION
  Report Type: 
  Country: None (occurrence: None)
  Receive Date: 20061201
  Receipt Date: 20060808
  Transmission Date: 20070707
  Serious: No
  Sender: FDA-Public Use
  Company Number: US200608001903

PATIENT
  Age: 64 Year
  Sex: Female

DRUGS (3)
  1. CYMBALTA [Suspect]
     Indication: RHEUMATOID ARTHRITIS
     Dosage: 30 MG
     Dates: start: 20060801
  2. THYROID TAB [Concomitant]
  3. METHOTREXATE [Concomitant]

REACTIONS (1)
  - PANIC ATTACK [None]
